APPROVED DRUG PRODUCT: OXALIPLATIN
Active Ingredient: OXALIPLATIN
Strength: 100MG/20ML (5MG/ML)
Dosage Form/Route: INJECTABLE;INTRAVENOUS
Application: A204880 | Product #002 | TE Code: AP
Applicant: ACTAVIS LLC AN INDIRECT WHOLLY OWNED SUB OF TEVA PHARMACEUTICALS USA INC
Approved: Mar 5, 2018 | RLD: No | RS: No | Type: RX